FAERS Safety Report 13493286 (Version 1)
Quarter: 2017Q2

REPORT INFORMATION
  Report Type: Spontaneous
  Country: US (occurrence: US)
  Receive Date: 20170427
  Receipt Date: 20170427
  Transmission Date: 20170830
  Serious: No
  Sender: FDA-Public Use
  Company Number: US-CIPLA LTD.-2016US18983

PATIENT

DRUGS (3)
  1. AMLODIPINE [Concomitant]
     Active Substance: AMLODIPINE BESYLATE
     Indication: HYPERTENSION
     Dosage: 5 MG, QD
     Route: 065
  2. LEVOFLOXACIN. [Suspect]
     Active Substance: LEVOFLOXACIN
     Indication: BRONCHITIS
     Dosage: 750 MG, ONCE A WEEK
     Route: 048
     Dates: start: 20160915, end: 20160922
  3. ZITHROMAX Z PAK [Concomitant]
     Indication: ANTIBIOTIC THERAPY
     Dosage: 250 MG, QD FOR 5 DAYS
     Route: 065
     Dates: start: 20160926

REACTIONS (3)
  - Abdominal pain upper [Unknown]
  - Vomiting [Recovered/Resolved]
  - Asthenia [Unknown]

NARRATIVE: CASE EVENT DATE: 20160923
